FAERS Safety Report 14133188 (Version 1)
Quarter: 2017Q4

REPORT INFORMATION
  Report Type: Spontaneous
  Country: US (occurrence: US)
  Receive Date: 20171026
  Receipt Date: 20171026
  Transmission Date: 20180321
  Serious: No
  Sender: FDA-Public Use
  Company Number: US-BAUSCH-BL-2017-012515

PATIENT
  Age: 33 Year
  Sex: Female

DRUGS (2)
  1. ELIDEL [Suspect]
     Active Substance: PIMECROLIMUS
     Indication: RASH
     Dosage: APPLIED THE PRODUCT EXTERNALLY TO AFFECTED AREAS ALL OVER HER BODY AVOIDING CERTAIN AREAS
     Route: 061
     Dates: start: 20170427
  2. AVEENO CALAMINE AND PRAMOXINE HYDROCHLORIDE ANTI ITCH [Suspect]
     Active Substance: FERRIC OXIDE RED\PRAMOXINE HYDROCHLORIDE\ZINC OXIDE
     Indication: PRURITUS
     Route: 065

REACTIONS (3)
  - Exposure during breast feeding [Unknown]
  - Pruritus [Not Recovered/Not Resolved]
  - Skin burning sensation [Recovered/Resolved]

NARRATIVE: CASE EVENT DATE: 2017
